FAERS Safety Report 23112319 (Version 1)
Quarter: 2023Q4

REPORT INFORMATION
  Report Type: Report from Study
  Country: DE (occurrence: DE)
  Receive Date: 20231027
  Receipt Date: 20231027
  Transmission Date: 20240110
  Serious: Yes (Death, Hospitalization, Other)
  Sender: FDA-Public Use
  Company Number: None

PATIENT
  Age: 73 Year
  Sex: Female
  Weight: 64 kg

DRUGS (32)
  1. DEXTROSE [Suspect]
     Active Substance: DEXTROSE\DEXTROSE MONOHYDRATE
     Indication: Parenteral nutrition
     Dosage: DOSAGE TEXT: 500MG/DAY (DOSAGE FORM: SOLUTION FOR INFUSION)
     Route: 042
     Dates: start: 20010415, end: 20010505
  2. MCP [Suspect]
     Active Substance: METOCLOPRAMIDE HYDROCHLORIDE
     Indication: Nausea
     Dosage: (DOSAGE FORM: UNSPECIFIED, 1 AMPULE), 20 (DROP (1/12 MILLILITRE)) (MCP CT-ARZNEIMITTEL)
     Route: 048
     Dates: start: 20010508, end: 20010508
  3. CARBIMAZOLE [Suspect]
     Active Substance: CARBIMAZOLE
     Indication: Hyperthyroidism
     Dosage: DOSAGE TEXT: 5 MG (MILLIGRAM), QD
     Route: 048
  4. PANTOPRAZOLE SODIUM [Suspect]
     Active Substance: PANTOPRAZOLE SODIUM
     Indication: Prophylaxis
     Dosage: DOSAGE TEXT : 20 MG (MILLIGRAM), QD
     Route: 048
     Dates: start: 20010506
  5. PANTOPRAZOLE SODIUM [Suspect]
     Active Substance: PANTOPRAZOLE SODIUM
     Dosage: DOSAGE TEXT : 20 MG (MILLIGRAM), QD
     Route: 048
     Dates: start: 20010415, end: 20010426
  6. DIMETHINDENE [Suspect]
     Active Substance: DIMETHINDENE
     Indication: Pruritus
     Dosage: DOSAGE FORM: 1 DF, QD
     Route: 048
     Dates: start: 200104
  7. HEPARIN [Suspect]
     Active Substance: HEPARIN SODIUM
     Indication: Thrombosis prophylaxis
     Dosage: 15000 INTERNATIONAL UNIT, ONCE DAILY, DOSAGE TEXT :7500 IU (INTERNATIONAL UNIT), BID
     Route: 058
     Dates: start: 20010426, end: 20010512
  8. CIPROFLOXACIN [Suspect]
     Active Substance: CIPROFLOXACIN
     Indication: Cholangitis
     Dosage: DOSAGE TEXT: DAILY DOSE: 1000 MG MILLIGRAM(S) EVERY DAY
     Route: 048
     Dates: start: 20010415, end: 20010426
  9. INSULIN HUMAN [Suspect]
     Active Substance: INSULIN HUMAN
     Indication: Diabetes mellitus
     Dosage: DOSAGE TEXT: 16IU-12IU-8IU
     Route: 058
     Dates: start: 20010415, end: 20010426
  10. MCP [Suspect]
     Active Substance: METOCLOPRAMIDE HYDROCHLORIDE
     Indication: Nausea
     Dosage: DOSAGE TEXT: 1 DF (DOSAGE FORM), ONCE/SINGLE (MCP CT-ARZNEIMITTEL)
     Route: 042
     Dates: start: 20010508, end: 20010508
  11. INSULIN NOS [Suspect]
     Active Substance: INSULIN NOS
     Indication: Parenteral nutrition
     Dosage: DOSAGE TEXT: 16IU-12IU-8IU
     Route: 042
     Dates: start: 20010415, end: 20010505
  12. PREDNISOLONE SODIUM SUCCINATE [Suspect]
     Active Substance: PREDNISOLONE SODIUM SUCCINATE
     Indication: Pruritus
     Dosage: (DOSAGE FORM: UNSPECIFIED), 100 MG (MILLIGRAM)
     Route: 042
     Dates: start: 20010511, end: 20010511
  13. CIPROFLOXACIN [Suspect]
     Active Substance: CIPROFLOXACIN
     Indication: Cholangitis
     Dosage: 2 DOSAGE FORM, ONCE DAILY, DOSAGE TEXT: 1 DF, BID
     Route: 042
     Dates: start: 20010426, end: 20010501
  14. METRONIDAZOLE [Suspect]
     Active Substance: METRONIDAZOLE
     Indication: Cholangitis
     Dosage: 800 MG, ONCE DAILY, DOSAGE TEXT: 400 MG, BID
     Route: 048
     Dates: start: 20010415, end: 20010426
  15. PENTAZOCINE [Suspect]
     Active Substance: PENTAZOCINE
     Indication: Pain
     Dosage: DOSAGE TEXT: 1 DF (DOSAGE FORM), ONCE/SINGLE, FORTRAL FOR INJECTION
     Route: 042
     Dates: start: 20010508, end: 20010508
  16. MEZLOCILLIN SODIUM [Suspect]
     Active Substance: MEZLOCILLIN SODIUM
     Indication: Cholangitis
     Dosage: DOSAGE TEXT: DAILY DOSE: 6 G GRAM(S) EVERY DAY
     Route: 042
     Dates: start: 20010428, end: 20010501
  17. AMINO ACIDS\DEXTROSE\VITAMINS [Suspect]
     Active Substance: AMINO ACIDS\DEXTROSE\VITAMINS
     Indication: Parenteral nutrition
     Dosage: DOSAGE TEXT: 500ML/DAY
     Route: 042
     Dates: start: 20010415, end: 20010427
  18. LOPERAMIDE [Suspect]
     Active Substance: LOPERAMIDE
     Indication: Diarrhoea
     Dosage: DOSAGE TEXT: 1 DF (DOSAGE FORM), ONCE/SINGLE
     Route: 048
     Dates: start: 20010430, end: 20010430
  19. ETILEFRINE [Suspect]
     Active Substance: ETILEFRINE
     Indication: Hypotension
     Dosage: DOSAGE TEXT: 30 DRP(DROP (1/12 MILLILITRE)), ONCE/SINGLE
     Route: 048
     Dates: start: 20010508, end: 20010508
  20. OMEPRAZOLE [Suspect]
     Active Substance: OMEPRAZOLE
     Indication: Prophylaxis
     Dosage: DOSAGE TEXT: 1 DF (DOSAGE FORM), QD
     Route: 042
     Dates: start: 20010426, end: 20010505
  21. HYMECROMONE [Suspect]
     Active Substance: HYMECROMONE
     Indication: Cholelithiasis
     Dosage: DOSAGE TEXT: 1 DF (DOSAGE FORM), QD
     Route: 042
     Dates: start: 20010510
  22. DIMENHYDRINATE [Suspect]
     Active Substance: DIMENHYDRINATE
     Indication: Nausea
     Dosage: DOSAGE TEXT: 1 DF (DOSAGE FORM), ONCE/SINGLE (YAMANOUCHI)
     Route: 042
     Dates: start: 20010508, end: 20010508
  23. DIMETHINDENE [Suspect]
     Active Substance: DIMETHINDENE
     Indication: Pruritus
     Dosage: DOSAGE FORM: AMPOULES, 1 AMPULE
     Route: 042
     Dates: start: 20010511, end: 20010512
  24. DIMETHINDENE [Suspect]
     Active Substance: DIMETHINDENE
     Indication: Pruritus
     Route: 065
     Dates: start: 20010511, end: 20010511
  25. PREDNISOLONE SODIUM SUCCINATE [Suspect]
     Active Substance: PREDNISOLONE SODIUM SUCCINATE
     Indication: Pruritus
     Dosage: DOSAGE TEXT: 100 MG (MILLIGRAM), QD
     Route: 042
     Dates: start: 20010511, end: 20010511
  26. OMEPRAZOLE [Suspect]
     Active Substance: OMEPRAZOLE
     Indication: Peptic ulcer
     Dosage: AT AN UNSPECIFIED DOSE AND FREQUENCY (DOSAGE FORM: UNSPECIFIED)
     Route: 042
     Dates: start: 20010508, end: 20010508
  27. ALDACTONE [Suspect]
     Active Substance: SPIRONOLACTONE
     Indication: Oedema
     Dosage: DOSAGE TEXT: 100 MG (MILLIGRAM), QD
     Route: 048
     Dates: start: 20010415, end: 20010425
  28. METRONIDAZOLE [Suspect]
     Active Substance: METRONIDAZOLE
     Indication: Cholangitis
     Dosage: DOSAGE TEXT: DAILY DOSE: 800 MG MILLIGRAM(S) EVERY DAY
     Route: 042
     Dates: start: 20010426, end: 20010501
  29. POTASSIUM CHLORIDE [Concomitant]
     Active Substance: POTASSIUM CHLORIDE
     Indication: Hypokalaemia
     Route: 042
     Dates: start: 20010426, end: 20010501
  30. Jonosteril [Concomitant]
     Dosage: DOSAGE TEXT: 250ML/DAY
     Route: 042
     Dates: start: 20010415, end: 20010505
  31. SODIUM CHLORIDE [Concomitant]
     Active Substance: SODIUM CHLORIDE
     Dosage: DOSAGE TEXT: 100 ML, ONCE/SINGLE
     Route: 042
     Dates: start: 20010508, end: 20010508
  32. POTASSIUM CHLORIDE [Concomitant]
     Active Substance: POTASSIUM CHLORIDE
     Indication: Hypokalaemia
     Dosage: DOSAGE TEXT: 1 DF (DOSAGE FORM), QD
     Route: 048
     Dates: start: 20010506

REACTIONS (11)
  - Circulatory collapse [Fatal]
  - Cardiac arrest [Fatal]
  - Toxic epidermal necrolysis [Fatal]
  - Stevens-Johnson syndrome [Fatal]
  - Blister [Unknown]
  - Conjunctivitis [Unknown]
  - Lip erosion [Unknown]
  - Skin exfoliation [Unknown]
  - Skin lesion [Unknown]
  - Pruritus [Unknown]
  - Rash [Unknown]

NARRATIVE: CASE EVENT DATE: 20010511
